FAERS Safety Report 5521513-5 (Version None)
Quarter: 2007Q4

REPORT INFORMATION
  Report Type: 
  Country: None (occurrence: None)
  Receive Date: 20071120
  Receipt Date: 20071106
  Transmission Date: 20080405
  Serious: Yes (Other)
  Sender: FDA-Public Use
  Company Number: ES-NOVOPROD-269114

PATIENT
  Age: 28 Year
  Sex: Female

DRUGS (2)
  1. LEVEMIR [Suspect]
     Indication: TYPE 1 DIABETES MELLITUS
     Dates: start: 20070606, end: 20070725
  2. NOVORAPID [Concomitant]

REACTIONS (1)
  - ABORTION SPONTANEOUS [None]
